FAERS Safety Report 8576807-6 (Version None)
Quarter: 2012Q3

REPORT INFORMATION
  Report Type: 
  Country: None (occurrence: None)
  Receive Date: 20120807
  Receipt Date: 20120803
  Transmission Date: 20120928
  Serious: Yes (Death, Hospitalization, Other)
  Sender: FDA-Public Use
  Company Number: CA-AMGEN-US260481

PATIENT
  Age: 59 Year
  Sex: Male

DRUGS (7)
  1. RAMIPRIL [Concomitant]
     Dosage: 10 MG, QD
     Route: 065
  2. DOCUSATE SODIUM [Concomitant]
     Dosage: 100 MG, QD
     Route: 065
  3. MULTI-VITAMINS [Concomitant]
     Dosage: UNK UNK, QD
     Route: 065
  4. ERYTHROPOIETIN HUMAN [Concomitant]
     Dosage: 2000 IU, 3 TIMES/WK
     Route: 065
  5. CINACALCET HYDROCHLORIDE [Suspect]
     Indication: HYPERPARATHYROIDISM SECONDARY
     Dosage: UNK UNK, QD
     Route: 048
     Dates: start: 20070524, end: 20080108
  6. CALCIUM CARBONATE [Concomitant]
     Dosage: 1250 MG, TID
     Route: 065
  7. FERROUS FUMARATE [Concomitant]
     Dosage: 300 MG, QD
     Route: 065

REACTIONS (4)
  - CONVULSION [None]
  - INTRACRANIAL PRESSURE INCREASED [None]
  - PAPILLOEDEMA [None]
  - CARDIO-RESPIRATORY ARREST [None]
